FAERS Safety Report 6234887-7 (Version None)
Quarter: 2009Q2

REPORT INFORMATION
  Report Type: 
  Country: None (occurrence: None)
  Receive Date: 20090618
  Receipt Date: 20090610
  Transmission Date: 20091009
  Serious: Yes (Other)
  Sender: FDA-Public Use
  Company Number: US-PFIZER INC-2009218914

PATIENT
  Sex: Female

DRUGS (1)
  1. PROSTIN VR PEDIATRIC [Suspect]

REACTIONS (1)
  - ABORTION SPONTANEOUS [None]
